FAERS Safety Report 6368733-8 (Version None)
Quarter: 2009Q3

REPORT INFORMATION
  Report Type: 
  Country: None (occurrence: None)
  Receive Date: 20090917
  Receipt Date: 20090917
  Transmission Date: 20100115
  Serious: Yes (Life-Threatening, Other)
  Sender: FDA-Public Use
  Company Number: None

PATIENT
  Age: 62 Year
  Sex: Female
  Weight: 61.6892 kg

DRUGS (1)
  1. COLCHICINE .6 WEST-WARD [Suspect]
     Indication: FAMILIAL MEDITERRANEAN FEVER
     Dosage: .6 MG QID PO  APPROX 5-6 YEARS
     Route: 048

REACTIONS (6)
  - DRUG INEFFECTIVE [None]
  - MALAISE [None]
  - PAIN [None]
  - PRODUCT SUBSTITUTION ISSUE [None]
  - PYREXIA [None]
  - RASH [None]
